FAERS Safety Report 10164083 (Version 1)
Quarter: 2014Q2

REPORT INFORMATION
  Report Type: Spontaneous
  Country: US (occurrence: US)
  Receive Date: 20140510
  Receipt Date: 20140510
  Transmission Date: 20141212
  Serious: Yes (Other)
  Sender: FDA-Public Use
  Company Number: US-BRISTOL-MYERS SQUIBB COMPANY-19915230

PATIENT
  Sex: Female

DRUGS (1)
  1. BYETTA PEN DISPOSABLE [Suspect]
     Indication: TYPE 2 DIABETES MELLITUS
     Dosage: 01MAY2012-DOSE INCREASED-10MCG BID ?29NOV2013-ONGOING
     Dates: start: 20120404

REACTIONS (4)
  - Nausea [Unknown]
  - Diarrhoea [Unknown]
  - Blood glucose increased [Unknown]
  - Malaise [Unknown]
